FAERS Safety Report 24585604 (Version 3)
Quarter: 2025Q3

REPORT INFORMATION
  Report Type: Report from Study
  Country: US (occurrence: US)
  Receive Date: 20241106
  Receipt Date: 20250828
  Transmission Date: 20251020
  Serious: No
  Sender: SUNOVION
  Company Number: US-SUMITOMO PHARMA SWITZERLAND GMBH-2024SPA004635

PATIENT
  Age: 84 Year
  Sex: Male

DRUGS (24)
  1. ORGOVYX [Suspect]
     Active Substance: RELUGOLIX
     Indication: Prostate cancer
     Dosage: 360 MG, SINGLE
     Route: 048
     Dates: start: 202311, end: 202311
  2. ORGOVYX [Suspect]
     Active Substance: RELUGOLIX
     Dosage: 120 MG, QD
     Route: 048
     Dates: start: 202311
  3. XTANDI [Suspect]
     Active Substance: ENZALUTAMIDE
  4. AMLODIPINE [Concomitant]
     Active Substance: AMLODIPINE BESYLATE
  5. BASAGLAR [Concomitant]
     Active Substance: INSULIN GLARGINE
  6. GLIPIZIDE [Concomitant]
     Active Substance: GLIPIZIDE
  7. LISINOPRIL [Concomitant]
     Active Substance: LISINOPRIL
  8. MIRALAX [Concomitant]
     Active Substance: POLYETHYLENE GLYCOL 3350
  9. MOTRIN [Concomitant]
     Active Substance: IBUPROFEN
  10. OZEMPIC [Concomitant]
     Active Substance: SEMAGLUTIDE
  11. PANTOPRAZOLE [Concomitant]
     Active Substance: PANTOPRAZOLE
  12. ROBITUSSIN (GUAIFENESIN) [Concomitant]
     Active Substance: GUAIFENESIN
  13. ROSUVASTATIN [Concomitant]
     Active Substance: ROSUVASTATIN
  14. SAMBUCOL [Concomitant]
     Active Substance: BRYONIA ALBA ROOT\GELSEMIUM SEMPERVIRENS ROOT\SAMBUCUS NIGRA FLOWERING TOP\SULFUR\ZINC GLUCONATE
  15. THRIVE [Concomitant]
     Active Substance: NICOTINE
  16. TIZANIDINE [Concomitant]
     Active Substance: TIZANIDINE
  17. TRIAMTERENE [Concomitant]
     Active Substance: TRIAMTERENE
  18. TYLENOL [Concomitant]
     Active Substance: ACETAMINOPHEN
  19. VENLAFAXINE [Concomitant]
     Active Substance: VENLAFAXINE HYDROCHLORIDE
  20. Viactiv [Concomitant]
  21. DORZOLAMIDE [Concomitant]
     Active Substance: DORZOLAMIDE
     Route: 047
  22. HERBALS [Concomitant]
     Active Substance: HERBALS
  23. CALCIUM [Concomitant]
     Active Substance: CALCIUM
  24. VITAMINS [Concomitant]
     Active Substance: VITAMINS

REACTIONS (4)
  - Sinusitis [Unknown]
  - Fatigue [Unknown]
  - Arthralgia [Unknown]
  - Asthenia [Unknown]
